FAERS Safety Report 10842845 (Version 1)
Quarter: 2015Q1

REPORT INFORMATION
  Report Type: Spontaneous
  Country: US (occurrence: US)
  Receive Date: 20150220
  Receipt Date: 20150220
  Transmission Date: 20150721
  Serious: No
  Sender: FDA-Public Use
  Company Number: US-ABBVIE-14P-163-1271690-00

PATIENT

DRUGS (4)
  1. HUMIRA [Suspect]
     Active Substance: ADALIMUMAB
  2. VEDOLIZUMAB [Suspect]
     Active Substance: VEDOLIZUMAB
     Indication: COSTOCHONDRITIS
  3. HUMIRA [Suspect]
     Active Substance: ADALIMUMAB
     Indication: COSTOCHONDRITIS
  4. METHOTREXATE [Suspect]
     Active Substance: METHOTREXATE
     Indication: COSTOCHONDRITIS

REACTIONS (1)
  - Drug ineffective [Unknown]
